FAERS Safety Report 4356011-8 (Version None)
Quarter: 2004Q2

REPORT INFORMATION
  Report Type: 
  Country: None (occurrence: None)
  Receive Date: 20040507
  Receipt Date: 20040507
  Transmission Date: 20050107
  Serious: Yes (Life-Threatening, Hospitalization)
  Sender: FDA-Public Use
  Company Number: None

PATIENT
  Age: 53 Year
  Sex: Male
  Weight: 69.4 kg

DRUGS (10)
  1. CYCLOSPORINE [Suspect]
     Indication: RENAL TRANSPLANT
     Dosage: 400 MG, 200 MG B, ORAL
     Route: 048
  2. CYCLOSPORINE [Suspect]
     Dosage: 200 MG PO
     Route: 048
     Dates: start: 20031010, end: 20031014
  3. PHENYTOIN [Suspect]
     Dosage: 200 MG PO
     Route: 048
     Dates: start: 20031010, end: 20031014
  4. ALLOPURINOL TAB [Suspect]
     Dosage: 300 MG PO
     Route: 048
     Dates: start: 20031010, end: 20031014
  5. PREDNISONE TAB [Suspect]
     Dosage: 5 MG PO
     Route: 048
     Dates: start: 20031010, end: 20031014
  6. NIFEDIPINE [Suspect]
     Dosage: 60 MG PO
     Route: 048
     Dates: start: 20031010, end: 20031010
  7. RANITIDINE [Suspect]
     Dosage: 50 MG IV
     Route: 042
     Dates: start: 20031010, end: 20031010
  8. ALLOPURINOL TAB [Concomitant]
  9. ZOSYN [Concomitant]
  10. AMPHOTERICIN B [Concomitant]

REACTIONS (1)
  - NEPHROPATHY TOXIC [None]
